FAERS Safety Report 15158117 (Version 8)
Quarter: 2019Q2

REPORT INFORMATION
  Report Type: Spontaneous
  Country: GB (occurrence: GB)
  Receive Date: 20180718
  Receipt Date: 20190429
  Transmission Date: 20190711
  Serious: Yes (Life-Threatening, Hospitalization, Other)
  Sender: FDA-Public Use
  Company Number: GB-MYLANLABS-2018M1051243

PATIENT
  Age: 29 Year
  Sex: Female

DRUGS (31)
  1. EPINEPHRINE. [Suspect]
     Active Substance: EPINEPHRINE
     Dosage: UNK
     Route: 065
  2. SALBUTAMOL MYLAN [Suspect]
     Active Substance: ALBUTEROL
     Dosage: 15 MILLIGRAM (NEBULISER)
     Route: 042
  3. SEVOFLURANE. [Suspect]
     Active Substance: SEVOFLURANE
     Indication: ASTHMA
     Dosage: 8 %, UNK
     Route: 055
  4. MONTELUKAST [Suspect]
     Active Substance: MONTELUKAST SODIUM
     Dosage: UNK
     Route: 065
  5. SALBUTAMOL MYLAN [Suspect]
     Active Substance: ALBUTEROL
     Dosage: UNK
  6. IPRATROPIUM [Suspect]
     Active Substance: IPRATROPIUM
     Indication: ASTHMA
     Dosage: 0.5 MILLIGRAM
     Route: 065
  7. SALBUTAMOL MYLAN [Suspect]
     Active Substance: ALBUTEROL
     Dosage: 15 MILLIGRAM (2 BOLUSES)
     Route: 040
  8. MAGNESIUM [Suspect]
     Active Substance: MAGNESIUM
     Dosage: UNK
  9. ATROVENT [Suspect]
     Active Substance: IPRATROPIUM BROMIDE
     Dosage: 0.5 MG, UNK (NEBULISATION)
     Route: 065
  10. MONTELUKAST [Suspect]
     Active Substance: MONTELUKAST SODIUM
     Indication: ASTHMA
     Dosage: UNK
     Route: 048
  11. PREDNISOLONE. [Suspect]
     Active Substance: PREDNISOLONE
     Indication: ASTHMA
     Dosage: UNK
     Route: 048
  12. PREDNISOLONE. [Suspect]
     Active Substance: PREDNISOLONE
     Dosage: 30 MG, UNK
     Route: 048
  13. ATROVENT [Suspect]
     Active Substance: IPRATROPIUM BROMIDE
     Indication: ASTHMA
     Dosage: 0.5 MG, UNK
     Route: 005
  14. MONTELUKAST [Concomitant]
     Active Substance: MONTELUKAST SODIUM
     Indication: ASTHMA
     Dosage: UNK
     Route: 065
  15. PREDNISOLONE. [Concomitant]
     Active Substance: PREDNISOLONE
     Indication: ASTHMA
     Dosage: 30 MILLIGRAM
     Route: 065
  16. MAGNESIUM SULFATE. [Concomitant]
     Active Substance: MAGNESIUM SULFATE
     Indication: ASTHMA
     Dosage: UNK
  17. IPRATROPIUM [Suspect]
     Active Substance: IPRATROPIUM
     Dosage: 0.5 MILLIGRAM (NEBULISATION)
     Route: 065
  18. THEOPHYLLINE [Concomitant]
     Active Substance: THEOPHYLLINE ANHYDROUS
     Indication: ASTHMA
     Dosage: UNK
     Route: 065
  19. KETAMINE [Suspect]
     Active Substance: KETAMINE
     Indication: ASTHMA
     Dosage: UNK (INCREASED TO 45 MICROG/KG/MIN)
     Route: 042
  20. MAGNESIUM [Suspect]
     Active Substance: MAGNESIUM
     Indication: ASTHMA
     Dosage: 2 G, UNK
     Route: 042
  21. SEVOFLURANE. [Suspect]
     Active Substance: SEVOFLURANE
     Dosage: UNK
     Route: 055
  22. EPINEPHRINE. [Suspect]
     Active Substance: EPINEPHRINE
     Indication: ASTHMA
     Dosage: 350 ?G, UNK (DILUTED IN SMALL INCREMENTS)
     Route: 065
  23. SALBUTAMOL MYLAN [Suspect]
     Active Substance: ALBUTEROL
     Dosage: 0.5 MILLIGRAM
     Route: 042
  24. HYDROCORTISONE. [Suspect]
     Active Substance: HYDROCORTISONE
     Indication: ASTHMA
     Dosage: 100 MG, UNK
     Route: 042
  25. THEOPHYLLINE [Suspect]
     Active Substance: THEOPHYLLINE ANHYDROUS
     Indication: ASTHMA
     Dosage: UNK
     Route: 065
  26. SALBUTAMOL MYLAN [Suspect]
     Active Substance: ALBUTEROL
     Indication: ASTHMA
     Dosage: 250 ?G, UNK (2 BOLUSES)
     Route: 040
  27. SALBUTAMOL MYLAN [Suspect]
     Active Substance: ALBUTEROL
     Dosage: UNK (NEBULISER)
     Route: 065
  28. SALBUTAMOL MYLAN [Suspect]
     Active Substance: ALBUTEROL
     Dosage: 12.3 MG, UNK (FORM-INTRAVENOUS INFUSION)
     Route: 042
  29. SALBUTAMOL MYLAN [Suspect]
     Active Substance: ALBUTEROL
     Dosage: 15 MG, UNK (NEBULISATION- IN REPEATED DOSES)
     Route: 042
  30. SALBUTAMOL MYLAN [Suspect]
     Active Substance: ALBUTEROL
     Dosage: 250 MG, UNK
     Route: 042
  31. SALBUTAMOL MYLAN [Suspect]
     Active Substance: ALBUTEROL
     Dosage: UNK
     Route: 042

REACTIONS (20)
  - Blood lactic acid increased [Recovering/Resolving]
  - Respiratory acidosis [Recovering/Resolving]
  - Respiratory rate increased [Recovering/Resolving]
  - Airway peak pressure increased [Recovering/Resolving]
  - PO2 decreased [Recovering/Resolving]
  - Hypercapnia [Recovering/Resolving]
  - Oxygen saturation decreased [Recovering/Resolving]
  - Acute respiratory failure [Recovered/Resolved]
  - Off label use [Unknown]
  - Bronchospasm [Recovering/Resolving]
  - Lung hyperinflation [Recovering/Resolving]
  - Status asthmaticus [Recovered/Resolved]
  - Dyspnoea [Recovering/Resolving]
  - PCO2 increased [Recovering/Resolving]
  - Wheezing [Recovering/Resolving]
  - Drug ineffective [Recovering/Resolving]
  - Blood pH decreased [Recovering/Resolving]
  - Cyanosis [Recovering/Resolving]
  - Blood bicarbonate decreased [Recovering/Resolving]
  - Asthma [Recovering/Resolving]
